FAERS Safety Report 9838056 (Version 1)
Quarter: 2013Q4

REPORT INFORMATION
  Report Type: Spontaneous
  Country: US (occurrence: None)
  Receive Date: 20131205
  Receipt Date: 20131205
  Transmission Date: 20140711
  Serious: Yes (Hospitalization)
  Sender: FDA-Public Use
  Company Number: 163-POMAL-13092192

PATIENT
  Age: 76 Year
  Sex: Male

DRUGS (1)
  1. POMALYST (POMALIDOMIDE) (1 MILLIGRAM, CAPSULES) [Suspect]
     Indication: PLASMA CELL MYELOMA
     Dosage: 1 MG, 21 IN 21 D, PO
     Route: 048
     Dates: start: 20130819, end: 201309

REACTIONS (1)
  - Pneumonia [None]
